FAERS Safety Report 6475587-8 (Version None)
Quarter: 2009Q4

REPORT INFORMATION
  Report Type: 
  Country: None (occurrence: None)
  Receive Date: 20091204
  Receipt Date: 20091130
  Transmission Date: 20100525
  Serious: Yes (Other)
  Sender: FDA-Public Use
  Company Number: ES-MERCK-0912ESP00005

PATIENT
  Age: 12 Month
  Sex: Female

DRUGS (1)
  1. SINGULAIR [Suspect]
     Indication: ASTHMA
     Route: 048
     Dates: start: 20090520, end: 20090907

REACTIONS (3)
  - HALLUCINATION [None]
  - INSOMNIA [None]
  - SLEEP TERROR [None]
